FAERS Safety Report 6166496-2 (Version None)
Quarter: 2009Q2

REPORT INFORMATION
  Report Type: 
  Country: None (occurrence: None)
  Receive Date: 20090424
  Receipt Date: 20090415
  Transmission Date: 20091009
  Serious: Yes (Hospitalization)
  Sender: FDA-Public Use
  Company Number: US-ASTRAZENECA-2009AC01111

PATIENT
  Age: 86 Year
  Sex: Female

DRUGS (2)
  1. LISINOPRIL [Suspect]
     Indication: HYPERTENSION
     Route: 048
  2. BACTRIM DS [Interacting]
     Indication: CELLULITIS STAPHYLOCOCCAL
     Dosage: 800 MG/160 MG

REACTIONS (2)
  - DRUG INTERACTION [None]
  - HYPERKALAEMIA [None]
